FAERS Safety Report 5249613-8 (Version None)
Quarter: 2007Q1

REPORT INFORMATION
  Report Type: 
  Country: None (occurrence: None)
  Receive Date: 20070228
  Receipt Date: 20060824
  Transmission Date: 20070707
  Serious: No
  Sender: FDA-Public Use
  Company Number: US-GLAXOSMITHKLINE-A0603649A

PATIENT
  Age: 53 Year
  Sex: Female

DRUGS (2)
  1. IMITREX [Suspect]
     Indication: DRUG USE FOR UNKNOWN INDICATION
     Dosage: 6MG AS REQUIRED
     Route: 058
  2. NO CONCURRENT MEDICATION [Concomitant]

REACTIONS (3)
  - INJECTION SITE PAIN [None]
  - NO ADVERSE EFFECT [None]
  - PHARMACEUTICAL PRODUCT COMPLAINT [None]
